FAERS Safety Report 15082592 (Version 1)
Quarter: 2018Q2

REPORT INFORMATION
  Report Type: Spontaneous
  Country: DE (occurrence: DE)
  Receive Date: 20180628
  Receipt Date: 20180628
  Transmission Date: 20180711
  Serious: Yes (Disabling, Other)
  Sender: FDA-Public Use
  Company Number: DE-LUPIN HEALTHCARE (UK) LIMITED-2018-04602

PATIENT

DRUGS (1)
  1. MUNALEA 20 0,02 MG/0,15 MG FILMTABLETTEN [Suspect]
     Active Substance: DESOGESTREL\ETHINYL ESTRADIOL
     Indication: CONTRACEPTION
     Dosage: UNK
     Route: 065
     Dates: start: 201706, end: 201805

REACTIONS (2)
  - Blindness unilateral [Not Recovered/Not Resolved]
  - Loss of personal independence in daily activities [Not Recovered/Not Resolved]

NARRATIVE: CASE EVENT DATE: 201802
